FAERS Safety Report 19066633 (Version 1)
Quarter: 2021Q1

REPORT INFORMATION
  Report Type: Spontaneous
  Country: US (occurrence: US)
  Receive Date: 20210328
  Receipt Date: 20210328
  Transmission Date: 20210420
  Serious: Yes (Life-Threatening, Hospitalization, Other)
  Sender: FDA-Public Use
  Company Number: US-JNJFOC-20210352930

PATIENT

DRUGS (1)
  1. BENADRYL [Suspect]
     Active Substance: DIPHENHYDRAMINE HYDROCHLORIDE
     Indication: PRODUCT USED FOR UNKNOWN INDICATION
     Route: 065

REACTIONS (16)
  - Intentional product misuse [Unknown]
  - Hypotension [Unknown]
  - Rhabdomyolysis [Unknown]
  - Overdose [Unknown]
  - Suicide attempt [Unknown]
  - Status epilepticus [Unknown]
  - Respiratory failure [Unknown]
  - Drug abuse [Unknown]
  - Acidosis [Unknown]
  - Delirium [Unknown]
  - Cardiac arrest [Unknown]
  - Shock [Unknown]
  - Coma [Unknown]
  - Arrhythmia [Unknown]
  - Hallucination [Unknown]
  - Seizure [Unknown]
